FAERS Safety Report 5916372-2 (Version None)
Quarter: 2008Q4

REPORT INFORMATION
  Report Type: 
  Country: None (occurrence: None)
  Receive Date: 20081013
  Receipt Date: 20081006
  Transmission Date: 20090506
  Serious: Yes (Hospitalization)
  Sender: FDA-Public Use
  Company Number: US-BAYER-200831308NA

PATIENT
  Age: 29 Year
  Sex: Female
  Weight: 132 kg

DRUGS (1)
  1. MIRENA [Suspect]
     Indication: DYSFUNCTIONAL UTERINE BLEEDING
     Route: 015
     Dates: start: 20080129, end: 20080815

REACTIONS (5)
  - ABDOMINAL PAIN LOWER [None]
  - ADVERSE EVENT [None]
  - COMPLICATION OF DEVICE REMOVAL [None]
  - DEVICE BREAKAGE [None]
  - MENORRHAGIA [None]
